FAERS Safety Report 24163220 (Version 1)
Quarter: 2024Q3

REPORT INFORMATION
  Report Type: Spontaneous
  Country: FR (occurrence: FR)
  Receive Date: 20240801
  Receipt Date: 20240801
  Transmission Date: 20241016
  Serious: Yes (Hospitalization, Other)
  Sender: MERCK
  Company Number: None

PATIENT
  Age: 73 Year
  Sex: Female

DRUGS (6)
  1. KEYTRUDA [Suspect]
     Active Substance: PEMBROLIZUMAB
     Indication: Small intestine carcinoma
     Dosage: 200 MG - 1 CYCLE TREATMENT
     Route: 042
     Dates: start: 202312
  2. SERTRALINE HYDROCHLORIDE [Concomitant]
     Active Substance: SERTRALINE HYDROCHLORIDE
  3. PANTOPRAZOLE [Concomitant]
     Active Substance: PANTOPRAZOLE
  4. POLYETHYLENE GLYCOLS [Concomitant]
     Active Substance: POLYETHYLENE GLYCOLS
  5. BRIMONIDINE [Concomitant]
     Active Substance: BRIMONIDINE TARTRATE
  6. LATANOPROST [Concomitant]
     Active Substance: LATANOPROST

REACTIONS (2)
  - Hyponatraemia [Recovered/Resolved]
  - Hyperleukocytosis [Recovered/Resolved]

NARRATIVE: CASE EVENT DATE: 20240124
